FAERS Safety Report 8431731-4 (Version None)
Quarter: 2012Q2

REPORT INFORMATION
  Report Type: 
  Country: None (occurrence: None)
  Receive Date: 20120613
  Receipt Date: 20120604
  Transmission Date: 20120825
  Serious: Yes (Other)
  Sender: FDA-Public Use
  Company Number: US-BAYER-2012-056377

PATIENT
  Age: 43 Year
  Sex: Female

DRUGS (2)
  1. DROSPIRENONE AND ETHINYL ESTRADIOL [Suspect]
     Dosage: UNK
     Dates: start: 20100701, end: 20100801
  2. YAZ [Suspect]
     Dosage: UNK
     Dates: start: 20100601, end: 20100827

REACTIONS (1)
  - PULMONARY EMBOLISM [None]
